FAERS Safety Report 5648854-5 (Version None)
Quarter: 2008Q1

REPORT INFORMATION
  Report Type: 
  Country: None (occurrence: None)
  Receive Date: 20080304
  Receipt Date: 20080226
  Transmission Date: 20080703
  Serious: Yes (Hospitalization)
  Sender: FDA-Public Use
  Company Number: IT-ELI_LILLY_AND_COMPANY-IT200802003152

PATIENT
  Sex: Male

DRUGS (1)
  1. FORTEO [Suspect]
     Indication: LOWER LIMB FRACTURE
     Dosage: 20 UG, DAILY (1/D)
     Route: 058
     Dates: start: 20080101, end: 20080101

REACTIONS (4)
  - ATRIAL FIBRILLATION [None]
  - DYSURIA [None]
  - JAUNDICE [None]
  - OSTEOMYELITIS BACTERIAL [None]
